FAERS Safety Report 18101882 (Version 1)
Quarter: 2020Q3

REPORT INFORMATION
  Report Type: Report from Study
  Country: None (occurrence: US)
  Receive Date: 20200802
  Receipt Date: 20200802
  Transmission Date: 20201103
  Serious: Yes (Other)
  Sender: FDA-Public Use
  Company Number: US-ABBVIE-20K-163-3504998-00

PATIENT
  Age: 63 Year
  Sex: Male

DRUGS (1)
  1. RINVOQ [Suspect]
     Active Substance: UPADACITINIB
     Indication: RHEUMATOID ARTHRITIS
     Route: 048

REACTIONS (5)
  - Loss of consciousness [Unknown]
  - Chest pain [Unknown]
  - Stent placement [Recovering/Resolving]
  - Fall [Unknown]
  - Dizziness postural [Unknown]

NARRATIVE: CASE EVENT DATE: 20200729
